FAERS Safety Report 6886778-6 (Version None)
Quarter: 2010Q3

REPORT INFORMATION
  Report Type: 
  Country: None (occurrence: None)
  Receive Date: 20100730
  Receipt Date: 20100722
  Transmission Date: 20110219
  Serious: Yes (Other)
  Sender: FDA-Public Use
  Company Number: JP-PFIZER INC-2010092051

PATIENT
  Age: 64 Year
  Sex: Male

DRUGS (1)
  1. ZOLOFT [Suspect]
     Dosage: 50 MG, 2X/DAY (50 MG IN AM + PM)
     Route: 048

REACTIONS (1)
  - PROTRUSION TONGUE [None]
